FAERS Safety Report 10214144 (Version 2)
Quarter: 2014Q2

REPORT INFORMATION
  Report Type: Spontaneous
  Country: DE (occurrence: DE)
  Receive Date: 20140603
  Receipt Date: 20140603
  Transmission Date: 20141212
  Serious: Yes (Hospitalization, Other)
  Sender: FDA-Public Use
  Company Number: DE-ABBVIE-14K-062-1239051-00

PATIENT
  Age: 56 Year
  Sex: Male

DRUGS (3)
  1. ERGENYL [Suspect]
     Indication: EPILEPSY
     Dates: start: 2002
  2. CARBAMAZEPINE [Concomitant]
     Indication: PRODUCT USED FOR UNKNOWN INDICATION
  3. LAMOTRIGINE [Concomitant]
     Indication: PRODUCT USED FOR UNKNOWN INDICATION

REACTIONS (2)
  - Bone marrow tumour cell infiltration [Unknown]
  - Anaemia [Unknown]
